FAERS Safety Report 17172728 (Version 2)
Quarter: 2020Q2

REPORT INFORMATION
  Report Type: Spontaneous
  Country: US (occurrence: US)
  Receive Date: 20191219
  Receipt Date: 20200410
  Transmission Date: 20200713
  Serious: Yes (Other)
  Sender: FDA-Public Use
  Company Number: US-SA-2019SA348479

PATIENT
  Age: 36 Year
  Sex: Female
  Weight: 54.42 kg

DRUGS (2)
  1. TAXOTERE [Suspect]
     Active Substance: DOCETAXEL
     Indication: BREAST CANCER FEMALE
     Dosage: 250 MG, Q3W
     Route: 042
     Dates: start: 2001, end: 2001
  2. TAXOTERE [Suspect]
     Active Substance: DOCETAXEL
     Dosage: 250 MG, Q3W
     Route: 042
     Dates: start: 2002, end: 2002

REACTIONS (2)
  - Emotional distress [Unknown]
  - Alopecia [Not Recovered/Not Resolved]
